FAERS Safety Report 9537665 (Version 1)
Quarter: 2013Q3

REPORT INFORMATION
  Report Type: Spontaneous
  Country: US (occurrence: US)
  Receive Date: 20130919
  Receipt Date: 20130919
  Transmission Date: 20140515
  Serious: Yes (Other)
  Sender: FDA-Public Use
  Company Number: US-ELI_LILLY_AND_COMPANY-US201309004746

PATIENT
  Sex: Female
  Weight: 59.86 kg

DRUGS (1)
  1. HUMALOG LISPRO [Suspect]
     Dosage: UNK, UNKNOWN
     Route: 058

REACTIONS (2)
  - Renal failure [Not Recovered/Not Resolved]
  - Hypoglycaemia [Unknown]
